FAERS Safety Report 9764667 (Version 2)
Quarter: 2013Q4

REPORT INFORMATION
  Report Type: Report from Study
  Country: US (occurrence: US)
  Receive Date: 20131217
  Receipt Date: 20131223
  Transmission Date: 20140711
  Serious: Yes (Other)
  Sender: FDA-Public Use
  Company Number: US-ROCHE-1321159

PATIENT
  Sex: Female

DRUGS (1)
  1. LUCENTIS [Suspect]
     Indication: AGE-RELATED MACULAR DEGENERATION
     Dosage: LEFT EYE
     Route: 065
     Dates: start: 2005

REACTIONS (5)
  - Blindness [Not Recovered/Not Resolved]
  - Anaemia [Unknown]
  - Nephropathy [Unknown]
  - Osteoporosis [Unknown]
  - Visual acuity reduced [Not Recovered/Not Resolved]
